FAERS Safety Report 8891727 (Version 1)
Quarter: 2012Q4

REPORT INFORMATION
  Report Type: 
  Country: US (occurrence: US)
  Receive Date: 20121107
  Receipt Date: 20121107
  Transmission Date: 20130627
  Serious: No
  Sender: FDA-Public Use
  Company Number: US-AMGEN-USASP2011056164

PATIENT
  Age: 43 Year
  Sex: Female
  Weight: 91 kg

DRUGS (7)
  1. ENBREL [Suspect]
     Indication: PRODUCT USED FOR UNKNOWN INDICATION
     Dosage: 50 mg, 2 times/wk
  2. ALLEGRA [Concomitant]
     Dosage: 60 mg, UNK
  3. ENALAPRIL [Concomitant]
     Dosage: 10 mg, UNK
  4. CITALOPRAM [Concomitant]
     Dosage: 20 mg, UNK
  5. SIMVASTATIN [Concomitant]
     Dosage: 40 mg, UNK
  6. VITAMIN C [Concomitant]
     Dosage: 1000 mg, UNK
  7. ZEGERID [Concomitant]

REACTIONS (5)
  - Headache [Recovering/Resolving]
  - Fatigue [Recovering/Resolving]
  - Nausea [Recovering/Resolving]
  - Oropharyngeal pain [Unknown]
  - Pyrexia [Recovering/Resolving]
